FAERS Safety Report 5285903-0 (Version None)
Quarter: 2007Q1

REPORT INFORMATION
  Report Type: 
  Country: None (occurrence: None)
  Receive Date: 20070104
  Receipt Date: 20061026
  Transmission Date: 20070707
  Serious: No
  Sender: FDA-Public Use
  Company Number: BDI-008803

PATIENT
  Sex: Female

DRUGS (1)
  1. MULTIHANCE [Suspect]
     Indication: DRUG USE FOR UNKNOWN INDICATION
     Dosage: SY
     Dates: start: 20061007, end: 20061007

REACTIONS (1)
  - VOMITING [None]
